FAERS Safety Report 19891356 (Version 1)
Quarter: 2021Q3

REPORT INFORMATION
  Report Type: Spontaneous
  Country: CN (occurrence: CN)
  Receive Date: 20210927
  Receipt Date: 20210927
  Transmission Date: 20211014
  Serious: Yes (Other)
  Sender: FDA-Public Use
  Company Number: CN-BAXTER-2021BAX026302

PATIENT
  Age: 70 Year
  Sex: Male
  Weight: 72 kg

DRUGS (9)
  1. ENDOXAN [Suspect]
     Active Substance: CYCLOPHOSPHAMIDE
     Indication: MALIGNANT NEOPLASM OF THYMUS
     Dosage: CYCLOPHOSPHAMIDE FOR INJECTION 900MG + 0.9% NS 500ML; DAY 1, Q21D
     Route: 041
     Dates: start: 20191008, end: 20191008
  2. ENDOXAN [Suspect]
     Active Substance: CYCLOPHOSPHAMIDE
     Indication: METASTASES TO LUNG
  3. 0.9% SODIUM CHLORIDE INJECTION [Suspect]
     Active Substance: SODIUM CHLORIDE
     Dosage: DAY 1; EPIRUBICIN HYDROCHLORIDE FOR INJECTION 90MG + 0.9% NS 250ML, Q21D
     Route: 041
     Dates: start: 20191008, end: 20191008
  4. 0.9% SODIUM CHLORIDE INJECTION [Suspect]
     Active Substance: SODIUM CHLORIDE
     Dosage: D1?D2, CISPLATIN FOR INJECTION 40MG + 0.9% NS 250ML, Q21D
     Route: 041
     Dates: start: 20191008, end: 20191009
  5. CISPLATIN. [Suspect]
     Active Substance: CISPLATIN
     Indication: METASTASES TO LUNG
  6. AIDASHENG [Suspect]
     Active Substance: EPIRUBICIN HYDROCHLORIDE
     Indication: METASTASES TO LUNG
  7. 0.9% SODIUM CHLORIDE INJECTION [Suspect]
     Active Substance: SODIUM CHLORIDE
     Indication: MEDICATION DILUTION
     Dosage: CYCLOPHOSPHAMIDE FOR INJECTION 900MG + 0.9% NS 500ML; DAY 1, Q21D
     Route: 041
     Dates: start: 20191008, end: 20191008
  8. AIDASHENG [Suspect]
     Active Substance: EPIRUBICIN HYDROCHLORIDE
     Indication: MALIGNANT NEOPLASM OF THYMUS
     Dosage: DAY 1; EPIRUBICIN HYDROCHLORIDE FOR INJECTION 90MG + 0.9% NS 250ML, Q21D
     Route: 041
     Dates: start: 20191008, end: 20191008
  9. CISPLATIN. [Suspect]
     Active Substance: CISPLATIN
     Indication: MALIGNANT NEOPLASM OF THYMUS
     Dosage: LYOPHILIZED; D1?D2, CISPLATIN FOR INJECTION 40MG + 0.9% NS 250ML, Q21D
     Route: 041
     Dates: start: 20191008, end: 20191009

REACTIONS (2)
  - Myelosuppression [Recovering/Resolving]
  - Decreased appetite [Recovering/Resolving]

NARRATIVE: CASE EVENT DATE: 20191009
